FAERS Safety Report 15981601 (Version 1)
Quarter: 2019Q1

REPORT INFORMATION
  Report Type: Spontaneous
  Country: US (occurrence: US)
  Receive Date: 20190219
  Receipt Date: 20190219
  Transmission Date: 20190418
  Serious: Yes (Hospitalization)
  Sender: FDA-Public Use
  Company Number: PHHY2019US033924

PATIENT
  Age: 29 Year
  Sex: Male

DRUGS (1)
  1. ZIPRASIDONE. [Suspect]
     Active Substance: ZIPRASIDONE
     Indication: OBSESSIVE-COMPULSIVE DISORDER
     Dosage: 40 MG, QD
     Route: 065

REACTIONS (5)
  - Blood creatine phosphokinase increased [Recovered/Resolved]
  - Dyspnoea [Recovered/Resolved]
  - Myopathy toxic [Recovering/Resolving]
  - Pneumonia aspiration [Recovering/Resolving]
  - Product use in unapproved indication [Unknown]
